FAERS Safety Report 4913021-7 (Version None)
Quarter: 2006Q1

REPORT INFORMATION
  Report Type: 
  Country: None (occurrence: None)
  Receive Date: 20060210
  Receipt Date: 20060201
  Transmission Date: 20060701
  Serious: Yes (Other)
  Sender: FDA-Public Use
  Company Number: 2005104663

PATIENT
  Age: 81 Year
  Sex: Female

DRUGS (6)
  1. CELEBREX [Suspect]
     Indication: ILL-DEFINED DISORDER
     Dosage: 400 MG (200 MG, 2 IN 1 D),
     Dates: start: 20000101
  2. DILTIAZEM [Concomitant]
  3. NEXIUM [Concomitant]
  4. ADVAIR DISKUS 100/50 [Concomitant]
  5. SINGULAIR ^DIECKMANN^ (MONTELUKAST SODIUM) [Concomitant]
  6. ASTELIN [Concomitant]

REACTIONS (6)
  - AORTIC ARTERIOSCLEROSIS [None]
  - AORTIC DILATATION [None]
  - CAROTID ARTERY ATHEROMA [None]
  - MICROANGIOPATHY [None]
  - PERIPHERAL VASCULAR DISORDER [None]
  - THROMBOSIS [None]
